FAERS Safety Report 9060234 (Version 1)
Quarter: 2013Q1

REPORT INFORMATION
  Report Type: Spontaneous
  Country: US (occurrence: None)
  Receive Date: 20130118
  Receipt Date: 20130118
  Transmission Date: 20140127
  Serious: Yes (Death)
  Sender: FDA-Public Use
  Company Number: AUR-APL-2013-00485

PATIENT
  Age: 47 Year
  Sex: Female

DRUGS (2)
  1. AMLODIPINE [Suspect]
  2. CLONIDINE [Suspect]

REACTIONS (1)
  - Toxicity to various agents [None]
